FAERS Safety Report 10283799 (Version 5)
Quarter: 2014Q4

REPORT INFORMATION
  Report Type: Spontaneous
  Country: US (occurrence: None)
  Receive Date: 20140703
  Receipt Date: 20141223
  Transmission Date: 20150528
  Serious: Yes (Hospitalization)
  Sender: FDA-Public Use
  Company Number: UNT-2014-002262

PATIENT
  Age: 70 Year
  Sex: Female
  Weight: 103.2 kg

DRUGS (22)
  1. OXYGEN (OXYGEN) INHALATION GAS [Concomitant]
  2. CALCIUM (CALCIUM) [Concomitant]
     Active Substance: CALCIUM
  3. DOCUSATE SODIUM? [Concomitant]
  4. MULTIVITAMIN /00097801/ (ASCORBIC ACID, CALCIUM PANTOTHENATE, ERGOCALCIFEROL, NICOTINAMIDE, PYRIDOXINE HYDROCHLORIDE, RETINOL, RIBOFLAVIN, THIAMINE HYDROCHLORIDE) [Concomitant]
  5. REMODULIN [Suspect]
     Active Substance: TREPROSTINIL
     Indication: COR PULMONALE
     Dosage: 0.024 UG/KG/MIN, CONTINUING, SUBCUTANEOUS?
     Route: 058
     Dates: start: 20130828
  6. LASIX [Suspect]
     Active Substance: FUROSEMIDE
     Indication: OEDEMA PERIPHERAL
     Route: 048
     Dates: start: 20131230
  7. POTASSIUM CHLORIDE. [Concomitant]
     Active Substance: POTASSIUM CHLORIDE
  8. TRAMADOL [Concomitant]
     Active Substance: TRAMADOL
  9. GABAPENTIN. [Concomitant]
     Active Substance: GABAPENTIN
  10. ACETAMINOPHEN (PARACETAMOL) [Concomitant]
     Active Substance: ACETAMINOPHEN
  11. FISH OIL [Concomitant]
     Active Substance: FISH OIL
  12. REMODULIN [Suspect]
     Active Substance: TREPROSTINIL
     Indication: PULMONARY ARTERIAL HYPERTENSION
     Dosage: 0.024 UG/KG/MIN, CONTINUING, SUBCUTANEOUS?
     Route: 058
     Dates: start: 20130828
  13. ASPRIN /00002701/ (ACETYLSALICYLIC ACID) [Concomitant]
  14. FAMOTIDINE. [Concomitant]
     Active Substance: FAMOTIDINE
  15. HYDROCODONE [Concomitant]
     Active Substance: HYDROCODONE
  16. CLARITIN /00413701/ (GLICLAZIDE) [Concomitant]
  17. REMODULIN [Suspect]
     Active Substance: TREPROSTINIL
     Indication: CARDIAC FAILURE CONGESTIVE
     Dosage: 0.024 UG/KG/MIN, CONTINUING, SUBCUTANEOUS?
     Route: 058
     Dates: start: 20130828
  18. ZANTAC [Concomitant]
     Active Substance: RANITIDINE HYDROCHLORIDE
  19. SYNTHROID [Concomitant]
     Active Substance: LEVOTHYROXINE SODIUM
  20. LANTUS [Concomitant]
     Active Substance: INSULIN GLARGINE
  21. SEA OMEGA (DOCOSAHEXAENOIC ACID, EICOSAPENTAENOIC ACID) [Concomitant]
  22. COZAAR [Concomitant]
     Active Substance: LOSARTAN POTASSIUM

REACTIONS (6)
  - Fatigue [None]
  - Pneumonia [None]
  - Pain [None]
  - Cardiac flutter [None]
  - Dehydration [None]
  - Urinary tract infection [None]

NARRATIVE: CASE EVENT DATE: 20140328
